FAERS Safety Report 17336646 (Version 1)
Quarter: 2020Q1

REPORT INFORMATION
  Report Type: Spontaneous
  Country: US (occurrence: US)
  Receive Date: 20200128
  Receipt Date: 20200128
  Transmission Date: 20200409
  Serious: No
  Sender: FDA-Public Use
  Company Number: US-GLAXOSMITHKLINE-US2020012990

PATIENT
  Age: 58 Year
  Sex: Female

DRUGS (1)
  1. NUCALA [Suspect]
     Active Substance: MEPOLIZUMAB
     Indication: PRODUCT USED FOR UNKNOWN INDICATION
     Dosage: 100 MG, CYC
     Route: 042
     Dates: end: 20191213

REACTIONS (9)
  - Lymphadenopathy [Unknown]
  - Paraesthesia oral [Unknown]
  - Hypersensitivity [Unknown]
  - Erythema [Unknown]
  - Throat tightness [Unknown]
  - Fatigue [Unknown]
  - Ear infection [Unknown]
  - Anxiety [Recovered/Resolved]
  - Back pain [Unknown]

NARRATIVE: CASE EVENT DATE: 20191226
